FAERS Safety Report 5569654-0 (Version None)
Quarter: 2007Q4

REPORT INFORMATION
  Report Type: 
  Country: None (occurrence: None)
  Receive Date: 20071220
  Receipt Date: 20071218
  Transmission Date: 20080405
  Serious: Yes (Life-Threatening)
  Sender: FDA-Public Use
  Company Number: B0481081A

PATIENT
  Age: 22 Year
  Sex: Female

DRUGS (5)
  1. CEFAMEZIN [Suspect]
     Indication: INFECTION PROPHYLAXIS
     Route: 042
     Dates: start: 20070720, end: 20070720
  2. LACTEC [Concomitant]
     Dates: end: 20070720
  3. STEROID [Concomitant]
     Dates: end: 20070725
  4. KEFLEX [Concomitant]
     Route: 065
     Dates: start: 20070719
  5. ZITHROMAX [Concomitant]
     Dates: start: 20061213

REACTIONS (16)
  - ANAPHYLACTIC SHOCK [None]
  - BLOOD PRESSURE DECREASED [None]
  - CHEST PAIN [None]
  - DELIVERY [None]
  - DISSEMINATED INTRAVASCULAR COAGULATION [None]
  - DYSPEPSIA [None]
  - HAEMORRHAGE [None]
  - HEADACHE [None]
  - HYSTERECTOMY [None]
  - LABILE BLOOD PRESSURE [None]
  - PRURITUS [None]
  - RESPIRATION ABNORMAL [None]
  - SHOCK HAEMORRHAGIC [None]
  - URINARY INCONTINENCE [None]
  - UTERINE HAEMORRHAGE [None]
  - VOMITING [None]
